FAERS Safety Report 4499449-0 (Version None)
Quarter: 2004Q4

REPORT INFORMATION
  Report Type: 
  Country: None (occurrence: None)
  Receive Date: 20040928
  Receipt Date: 20040811
  Transmission Date: 20050328
  Serious: No
  Sender: FDA-Public Use
  Company Number: 04P-163-0270133-00

PATIENT
  Age: 48 Year
  Sex: Male
  Weight: 63.5036 kg

DRUGS (6)
  1. HUMIRA [Suspect]
     Indication: RHEUMATOID ARTHRITIS
     Dosage: 40 MG, 1 IN 2 WK, SUBCUTANEOUS
     Route: 058
     Dates: start: 20040810
  2. METHOTREXATE [Concomitant]
  3. NAPROXEN [Concomitant]
  4. BUPROPION HYDROCHLORIDE [Concomitant]
  5. PREDNISONE [Concomitant]
  6. TRAZODONE HCL [Concomitant]

REACTIONS (2)
  - ABDOMINAL DISTENSION [None]
  - DRY MOUTH [None]
